FAERS Safety Report 22053663 (Version 1)
Quarter: 2023Q1

REPORT INFORMATION
  Report Type: Other
  Country: US (occurrence: None)
  Receive Date: 20230302
  Receipt Date: 20230302
  Transmission Date: 20230418
  Serious: Yes (Other)
  Sender: FDA-Public Use
  Company Number: US-ROCHE-3295689

PATIENT
  Age: 70 Year
  Sex: Female

DRUGS (1)
  1. XELODA [Suspect]
     Active Substance: CAPECITABINE
     Indication: Breast cancer metastatic
     Dosage: TAKE 2 TABLETS BY MOUTH EVERY MORNING AND TAKE 3 TABLETS BY MOUTH EVERY EVENING FOR 7 DAYS ON, T
     Route: 048

REACTIONS (1)
  - Lung cancer metastatic [Unknown]
